FAERS Safety Report 8950327 (Version 1)
Quarter: 2012Q4

REPORT INFORMATION
  Report Type: Spontaneous
  Country: US (occurrence: None)
  Receive Date: 20121130
  Receipt Date: 20121130
  Transmission Date: 20130627
  Serious: No
  Sender: FDA-Public Use
  Company Number: None

PATIENT
  Age: 79 Year
  Sex: Male

DRUGS (10)
  1. XARELTO [Suspect]
     Indication: ATRIAL FIBRILLATION
     Route: 048
  2. ALFUZOSIN [Concomitant]
  3. ATORVASTATIN [Concomitant]
  4. CARVEDILOL [Concomitant]
  5. FUROSEMIDE [Concomitant]
  6. ISOSORBIED MONONITRATE [Concomitant]
  7. KLOR-CON [Concomitant]
  8. LISINOPRIL [Concomitant]
  9. PLAVIS [Concomitant]
  10. SPIRONOLACTONE [Concomitant]

REACTIONS (1)
  - Diarrhoea [None]
